FAERS Safety Report 5330957-6 (Version None)
Quarter: 2007Q2

REPORT INFORMATION
  Report Type: 
  Country: None (occurrence: None)
  Receive Date: 20070518
  Receipt Date: 20070518
  Transmission Date: 20071010
  Serious: Yes (Other)
  Sender: FDA-Public Use
  Company Number: None

PATIENT
  Age: 75 Year
  Sex: Female
  Weight: 57.1532 kg

DRUGS (1)
  1. PHENERGAN N/A N/A [Suspect]
     Dosage: GIVEN IN HOSPITAL
     Dates: start: 20070514, end: 20070514

REACTIONS (3)
  - FEELING ABNORMAL [None]
  - LOSS OF CONSCIOUSNESS [None]
  - SPEECH DISORDER [None]
